FAERS Safety Report 20292329 (Version 1)
Quarter: 2022Q1

REPORT INFORMATION
  Report Type: Spontaneous
  Country: US (occurrence: US)
  Receive Date: 20220104
  Receipt Date: 20220104
  Transmission Date: 20220423
  Serious: No
  Sender: FDA-Public Use
  Company Number: US-ELI_LILLY_AND_COMPANY-US202201000667

PATIENT
  Age: 53 Year
  Sex: Female

DRUGS (3)
  1. HUMALOG [Suspect]
     Active Substance: INSULIN LISPRO
     Indication: Type 1 diabetes mellitus
     Dosage: 5 U, PRN
     Route: 065
     Dates: start: 2007
  2. HUMALOG [Suspect]
     Active Substance: INSULIN LISPRO
     Dosage: 5 U, PRN (3-5 UNITS PRIOR TO EACH MEAL WITH A SLIDING SCALE)
     Route: 065
     Dates: start: 20220101
  3. LANTUS [Concomitant]
     Active Substance: INSULIN GLARGINE
     Indication: Type 1 diabetes mellitus
     Dosage: 20 U, DAILY
     Route: 065

REACTIONS (2)
  - Blood glucose increased [Recovered/Resolved]
  - Visual impairment [Unknown]

NARRATIVE: CASE EVENT DATE: 20220101
